FAERS Safety Report 9670648 (Version 2)
Quarter: 2013Q4

REPORT INFORMATION
  Report Type: Spontaneous
  Country: TR (occurrence: TR)
  Receive Date: 20131106
  Receipt Date: 20131120
  Transmission Date: 20140711
  Serious: Yes (Other)
  Sender: FDA-Public Use
  Company Number: TR-BRISTOL-MYERS SQUIBB COMPANY-19697077

PATIENT
  Age: 54 Year
  Sex: Male

DRUGS (4)
  1. YERVOY [Suspect]
     Indication: METASTATIC MALIGNANT MELANOMA
     Dosage: 1 DF: 5 MG/ML?CONCENTRATE SOL FOR INFUSION
  2. DACARBAZINE [Concomitant]
  3. CORTISONE [Concomitant]
  4. KEPPRA [Concomitant]

REACTIONS (5)
  - Malignant neoplasm progression [Unknown]
  - Herpes zoster [Unknown]
  - Muscular weakness [Unknown]
  - General physical condition abnormal [Unknown]
  - Incorrect product storage [Unknown]
